FAERS Safety Report 7062707-X (Version None)
Quarter: 2010Q4

REPORT INFORMATION
  Report Type: 
  Country: None (occurrence: None)
  Receive Date: 20101026
  Receipt Date: 20091216
  Transmission Date: 20110411
  Serious: No
  Sender: FDA-Public Use
  Company Number: US-PFIZER INC-2009313163

PATIENT
  Age: 68 Year
  Sex: Male
  Weight: 76.19 kg

DRUGS (3)
  1. LIPITOR [Suspect]
     Indication: BLOOD CHOLESTEROL INCREASED
     Dosage: 10 MG, 1X/DAY
     Dates: start: 20091211
  2. CENTRUM SILVER [Concomitant]
     Dosage: UNK
  3. ASPIRIN [Concomitant]
     Dosage: 80 MG, UNK

REACTIONS (2)
  - ARTHRALGIA [None]
  - MYALGIA [None]
